FAERS Safety Report 21701789 (Version 3)
Quarter: 2025Q1

REPORT INFORMATION
  Report Type: Spontaneous
  Country: US (occurrence: US)
  Receive Date: 20221208
  Receipt Date: 20250102
  Transmission Date: 20250409
  Serious: No
  Sender: PFIZER
  Company Number: US-PFIZER INC-PV202200119776

PATIENT
  Age: 79 Year
  Sex: Female
  Weight: 61.678 kg

DRUGS (2)
  1. VYNDAMAX [Suspect]
     Active Substance: TAFAMIDIS
     Indication: Amyloidosis
     Dosage: TAKE 1 CAPSULE EVERY DAY BY ORAL ROUTE FOR 60 DAYS
  2. VYNDAMAX [Suspect]
     Active Substance: TAFAMIDIS
     Indication: Cardiomyopathy

REACTIONS (1)
  - Pain [Unknown]
